FAERS Safety Report 4749628-X (Version None)
Quarter: 2005Q3

REPORT INFORMATION
  Report Type: 
  Country: None (occurrence: None)
  Receive Date: 20050822
  Receipt Date: 20050303
  Transmission Date: 20060218
  Serious: Yes (Hospitalization)
  Sender: FDA-Public Use
  Company Number: US-MERCK-0503USA00796

PATIENT
  Age: 48 Year
  Sex: Female
  Weight: 84 kg

DRUGS (16)
  1. VIOXX [Suspect]
     Indication: SHOULDER PAIN
     Route: 048
     Dates: start: 20030513
  2. VIOXX [Suspect]
     Indication: BACK PAIN
     Route: 048
     Dates: start: 20020807, end: 20040512
  3. VIOXX [Suspect]
     Route: 048
     Dates: start: 20030513
  4. GLUCOTROL [Concomitant]
     Route: 065
  5. LOTENSIN [Concomitant]
     Indication: HYPERTENSION
     Route: 065
  6. ULTRAM [Concomitant]
     Route: 065
  7. TRAMADOL HYDROCHLORIDE [Concomitant]
     Route: 065
  8. TIZANIDINE HYDROCHLORIDE [Concomitant]
     Route: 065
  9. PREVACID [Concomitant]
     Indication: HYPERTENSION
     Route: 065
  10. VIOXX [Suspect]
     Route: 048
     Dates: start: 20020807, end: 20040512
  11. ALTOCOR [Concomitant]
     Indication: BLOOD CHOLESTEROL INCREASED
     Route: 065
  12. METFORMIN [Concomitant]
     Route: 065
  13. HYDROCODONE BITARTRATE + ACETAMINOPHEN [Concomitant]
     Route: 065
  14. ZANAFLEX [Concomitant]
     Route: 065
  15. ALTACE [Concomitant]
     Indication: HYPERTENSION
     Route: 065
  16. ACTOS [Concomitant]
     Route: 065

REACTIONS (20)
  - BACK PAIN [None]
  - CAROTID ARTERY STENOSIS [None]
  - CARPAL TUNNEL SYNDROME [None]
  - CEREBROVASCULAR ACCIDENT [None]
  - DRUG HYPERSENSITIVITY [None]
  - GASTROOESOPHAGEAL REFLUX DISEASE [None]
  - GLUCOSE URINE PRESENT [None]
  - HEADACHE [None]
  - HEMIPARESIS [None]
  - HYPOVOLAEMIA [None]
  - LACUNAR INFARCTION [None]
  - LIPIDS INCREASED [None]
  - LYMPHOEDEMA [None]
  - NECK INJURY [None]
  - NECK PAIN [None]
  - POLYTRAUMATISM [None]
  - PYREXIA [None]
  - SHOULDER PAIN [None]
  - URINARY TRACT INFECTION [None]
  - URINE KETONE BODY PRESENT [None]
